FAERS Safety Report 7687231-2 (Version None)
Quarter: 2011Q3

REPORT INFORMATION
  Report Type: 
  Country: None (occurrence: None)
  Receive Date: 20110816
  Receipt Date: 20110803
  Transmission Date: 20111222
  Serious: No
  Sender: FDA-Public Use
  Company Number: US-BAUSCH-2011BL005358

PATIENT
  Age: 37 Year
  Sex: Female

DRUGS (5)
  1. SODIUM CHLORIDE [Concomitant]
  2. BUPIVACAINE HCL [Suspect]
     Indication: POSTOPERATIVE ANALGESIA
     Route: 042
  3. MORPHINE [Suspect]
     Indication: POSTOPERATIVE ANALGESIA
  4. EPHEDRINE [Concomitant]
     Route: 042
  5. PHENYLEPHRINE HCL [Suspect]
     Indication: POSTOPERATIVE ANALGESIA
     Route: 042

REACTIONS (6)
  - ACUTE MYOCARDIAL INFARCTION [None]
  - VENTRICULAR HYPOKINESIA [None]
  - CORONARY ARTERY DISSECTION [None]
  - ACUTE LEFT VENTRICULAR FAILURE [None]
  - ARTERIOSPASM CORONARY [None]
  - MATERNAL EXPOSURE DURING PREGNANCY [None]
